FAERS Safety Report 6110620-4 (Version None)
Quarter: 2009Q1

REPORT INFORMATION
  Report Type: 
  Country: None (occurrence: None)
  Receive Date: 20090310
  Receipt Date: 20090227
  Transmission Date: 20090719
  Serious: Yes (Other)
  Sender: FDA-Public Use
  Company Number: US-JNJCH-2009005838

PATIENT
  Sex: Male

DRUGS (1)
  1. COOL MINT LISTERINE POCKETMIST [Suspect]
     Indication: DRUG USE FOR UNKNOWN INDICATION
     Dosage: TEXT:UNSPECIFIED, 3 TIMES
     Route: 048

REACTIONS (1)
  - HEART RATE INCREASED [None]
